FAERS Safety Report 4476311-0 (Version None)
Quarter: 2004Q4

REPORT INFORMATION
  Report Type: 
  Country: None (occurrence: None)
  Receive Date: 20041016
  Receipt Date: 20030605
  Transmission Date: 20050328
  Serious: Yes (Other)
  Sender: FDA-Public Use
  Company Number: US-MERCK-0306USA00656

PATIENT
  Age: 42 Year
  Sex: Female

DRUGS (13)
  1. LORTAB [Concomitant]
     Route: 065
  2. FOLIC ACID [Concomitant]
     Route: 065
  3. SKELAXIN [Concomitant]
     Route: 065
  4. METHOTREXATE [Concomitant]
     Route: 065
  5. TOPROL-XL [Concomitant]
     Route: 065
  6. NITROPASTE [Concomitant]
     Route: 065
  7. PREDNISONE [Concomitant]
     Route: 065
  8. PREDNISONE [Concomitant]
     Route: 065
  9. VIOXX [Suspect]
     Route: 048
     Dates: start: 19990915
  10. VIOXX [Suspect]
     Route: 065
  11. SODIUM FOLATE [Concomitant]
     Route: 065
  12. ULTRAM [Concomitant]
     Route: 065
  13. TRIAMCINOLONE [Concomitant]
     Route: 065

REACTIONS (18)
  - ADVERSE EVENT [None]
  - ANGINA PECTORIS [None]
  - BLOOD PRESSURE INCREASED [None]
  - CONVULSION [None]
  - EAR DISORDER [None]
  - EYE DISORDER [None]
  - FIBROMYALGIA [None]
  - HEADACHE [None]
  - HEART RATE INCREASED [None]
  - HYPOAESTHESIA [None]
  - KIDNEY INFECTION [None]
  - NAUSEA [None]
  - PALPITATIONS [None]
  - RASH [None]
  - RENAL DISORDER [None]
  - STRESS SYMPTOMS [None]
  - UPPER RESPIRATORY TRACT INFECTION [None]
  - WEIGHT DECREASED [None]
